FAERS Safety Report 6561125-8 (Version None)
Quarter: 2010Q1

REPORT INFORMATION
  Report Type: 
  Country: None (occurrence: None)
  Receive Date: 20100130
  Receipt Date: 20091028
  Transmission Date: 20100710
  Serious: No
  Sender: FDA-Public Use
  Company Number: US-ABBOTT-09P-163-0600950-00

PATIENT
  Weight: 68.1 kg

DRUGS (3)
  1. HUMIRA [Suspect]
     Indication: RHEUMATOID ARTHRITIS
     Route: 058
     Dates: start: 20040101, end: 20090801
  2. PREDNISONE [Concomitant]
     Indication: INFLAMMATION
     Route: 048
  3. CLONAZEPAM [Concomitant]
     Indication: PANIC ATTACK
     Dosage: UNSURE OF STRENGTH
     Route: 048

REACTIONS (1)
  - SKIN LACERATION [None]
